FAERS Safety Report 11680838 (Version 1)
Quarter: 2015Q4

REPORT INFORMATION
  Report Type: Spontaneous
  Country: US (occurrence: US)
  Receive Date: 20151029
  Receipt Date: 20151029
  Transmission Date: 20160304
  Serious: No
  Sender: FDA-Public Use
  Company Number: US-009507513-1510USA014450

PATIENT
  Sex: Male

DRUGS (1)
  1. RAGWITEK [Suspect]
     Active Substance: AMBROSIA ARTEMISIIFOLIA POLLEN
     Indication: HYPERSENSITIVITY
     Dosage: 12 AMB/ONCE A DAY
     Route: 048

REACTIONS (1)
  - Drug ineffective [Unknown]
